FAERS Safety Report 4604430-4 (Version None)
Quarter: 2005Q2

REPORT INFORMATION
  Report Type: 
  Country: None (occurrence: None)
  Receive Date: 20050215
  Receipt Date: 20041028
  Transmission Date: 20051028
  Serious: Yes (Death)
  Sender: FDA-Public Use
  Company Number: 362643

PATIENT
  Age: 49 Year
  Sex: Male

DRUGS (2)
  1. PEGASYS [Suspect]
     Dosage: SUBCUTANEOUS
     Route: 058
  2. COPEGUS [Suspect]
     Dosage: ORAL
     Route: 048

REACTIONS (1)
  - DEATH [None]
